FAERS Safety Report 14465844 (Version 1)
Quarter: 2018Q1

REPORT INFORMATION
  Report Type: Spontaneous
  Country: US (occurrence: US)
  Receive Date: 20180131
  Receipt Date: 20180131
  Transmission Date: 20180509
  Serious: Yes (Hospitalization, Other)
  Sender: FDA-Public Use
  Company Number: US-AXELLIA-001339

PATIENT
  Age: 26 Year
  Sex: Male

DRUGS (2)
  1. VANCOMYCIN [Suspect]
     Active Substance: VANCOMYCIN
     Indication: ANTIBIOTIC THERAPY
  2. PIPERACILLIN/TAZOBACTAM [Concomitant]
     Indication: ANTIBIOTIC THERAPY

REACTIONS (7)
  - Multiple organ dysfunction syndrome [Recovering/Resolving]
  - Human herpesvirus 6 infection [Recovering/Resolving]
  - Acute respiratory distress syndrome [Recovering/Resolving]
  - Rhabdomyolysis [Recovering/Resolving]
  - Drug reaction with eosinophilia and systemic symptoms [Recovering/Resolving]
  - Respiratory failure [Recovering/Resolving]
  - Acute kidney injury [Recovering/Resolving]
